FAERS Safety Report 12254935 (Version 2)
Quarter: 2016Q3

REPORT INFORMATION
  Report Type: Report from Study
  Country: JP (occurrence: JP)
  Receive Date: 20160411
  Receipt Date: 20160802
  Transmission Date: 20161109
  Serious: Yes (Other)
  Sender: FDA-Public Use
  Company Number: JP-PFIZER INC-2016187571

PATIENT
  Age: 59 Year
  Sex: Female
  Weight: 40.2 kg

DRUGS (6)
  1. EDIROL [Concomitant]
     Active Substance: ELDECALCITOL
     Dosage: 0.75 UG, 1X/DAY
     Route: 048
  2. BENET [Concomitant]
     Active Substance: RISEDRONATE SODIUM
     Dosage: 17.5 MG, WEEKLY
     Route: 048
  3. NOVAMIN /00013301/ [Concomitant]
     Active Substance: PROCHLORPERAZINE MALEATE
     Dosage: 5 MG, AS NEEDED
     Route: 048
     Dates: start: 20140710, end: 20141001
  4. MAGLAX [Concomitant]
     Active Substance: MAGNESIUM OXIDE
     Dosage: 250 MG, 3X/DAY
     Route: 048
     Dates: start: 201407
  5. CRIZOTINIB [Suspect]
     Active Substance: CRIZOTINIB
     Indication: NON-SMALL CELL LUNG CANCER
     Dosage: 250 MG, 2X/DAY
     Route: 048
     Dates: start: 20140711
  6. ZOSYN [Concomitant]
     Active Substance: PIPERACILLIN SODIUM\TAZOBACTAM SODIUM
     Dosage: 4.5 G, 4X/DAY
     Dates: start: 20140728, end: 20140804

REACTIONS (4)
  - Nausea [Recovered/Resolved]
  - Renal cyst [Recovered/Resolved]
  - Photopsia [Recovered/Resolved]
  - Electrocardiogram QT prolonged [Recovered/Resolved]

NARRATIVE: CASE EVENT DATE: 20140711
